FAERS Safety Report 7738424-7 (Version None)
Quarter: 2011Q3

REPORT INFORMATION
  Report Type: 
  Country: None (occurrence: None)
  Receive Date: 20110908
  Receipt Date: 20110826
  Transmission Date: 20111222
  Serious: Yes (Other)
  Sender: FDA-Public Use
  Company Number: US-BAYER-200829328NA

PATIENT
  Age: 62 Year
  Sex: Male
  Weight: 154 kg

DRUGS (33)
  1. OMNISCAN [Suspect]
     Indication: PRODUCT USED FOR UNKNOWN INDICATION
  2. COREG [Concomitant]
     Indication: BLOOD PRESSURE ABNORMAL
  3. SUPARTZ [Concomitant]
  4. WARFARIN SODIUM [Concomitant]
     Indication: BLOOD PRESSURE ABNORMAL
     Dosage: 5 MG (DAILY DOSE), ,
  5. IRON [IRON] [Concomitant]
     Indication: DIALYSIS
     Dosage: ON DIALYSIS DAYS
  6. OPTIMARK [Suspect]
     Indication: PRODUCT USED FOR UNKNOWN INDICATION
  7. PROHANCE [Suspect]
     Indication: PRODUCT USED FOR UNKNOWN INDICATION
  8. DEMADEX [Concomitant]
  9. MAGNEVIST [Suspect]
     Indication: ANGIOGRAM
     Dosage: 72 ML, ONCE
     Dates: start: 20041202, end: 20041202
  10. HYDRALAZINE HCL [Concomitant]
     Indication: BLOOD PRESSURE ABNORMAL
     Dosage: 25 MG (DAILY DOSE), ,
  11. PROCRIT [Concomitant]
     Indication: DIALYSIS
     Dosage: ON DIALYSIS DAYS
  12. ANTITHROMBOTIC AGENTS [Concomitant]
  13. NESIRITIDE [Concomitant]
  14. ALBUTEROL SULFATE AUTOHALER [Concomitant]
  15. HYDRALAZINE HCL [Concomitant]
  16. HUMALOG [Concomitant]
     Indication: DIABETES MELLITUS
  17. AMIODARONE HCL [Concomitant]
     Indication: BLOOD PRESSURE ABNORMAL
     Dosage: 200 MG (DAILY DOSE), ,
  18. COREG [Concomitant]
     Indication: CARDIAC DISORDER
  19. WARFARIN SODIUM [Concomitant]
     Indication: CARDIAC DISORDER
  20. COREG [Concomitant]
  21. ALDACTONE [Concomitant]
  22. IMDUR [Concomitant]
  23. POTASSIUM CHLORIDE [Concomitant]
  24. ZOCOR [Concomitant]
  25. MULTIHANCE [Suspect]
     Indication: PRODUCT USED FOR UNKNOWN INDICATION
  26. AMIODARONE HCL [Concomitant]
     Indication: CARDIAC DISORDER
  27. HYDRALAZINE HCL [Concomitant]
     Indication: CARDIAC DISORDER
  28. LISINOPRIL [Concomitant]
     Indication: BLOOD PRESSURE ABNORMAL
     Dosage: 10 MG (DAILY DOSE), ,
  29. LISINOPRIL [Concomitant]
     Indication: CARDIAC DISORDER
  30. LANTUS [Concomitant]
     Indication: DIABETES MELLITUS
  31. VITAMIN TAB [Concomitant]
  32. COUMADIN [Concomitant]
  33. OPTIRAY 160 [Concomitant]
     Dosage: 15 ML, ONCE
     Dates: start: 20041202, end: 20041202

REACTIONS (22)
  - ANXIETY [None]
  - FATIGUE [None]
  - BURNING SENSATION [None]
  - MUSCULOSKELETAL CHEST PAIN [None]
  - INJURY [None]
  - JOINT SWELLING [None]
  - SKIN INDURATION [None]
  - JOINT INSTABILITY [None]
  - ABASIA [None]
  - EMOTIONAL DISTRESS [None]
  - PRURITUS [None]
  - MUSCULAR WEAKNESS [None]
  - PAIN [None]
  - SKIN ULCER [None]
  - BACK PAIN [None]
  - CHEST PAIN [None]
  - GENERAL PHYSICAL HEALTH DETERIORATION [None]
  - ARTHRALGIA [None]
  - NEPHROGENIC SYSTEMIC FIBROSIS [None]
  - PAIN IN EXTREMITY [None]
  - MOBILITY DECREASED [None]
  - RASH [None]
